FAERS Safety Report 7628308-7 (Version None)
Quarter: 2011Q3

REPORT INFORMATION
  Report Type: 
  Country: None (occurrence: None)
  Receive Date: 20110714
  Receipt Date: 20110630
  Transmission Date: 20111222
  Serious: Yes (Other)
  Sender: FDA-Public Use
  Company Number: 20110411

PATIENT
  Age: 54 Year
  Sex: Female

DRUGS (9)
  1. ACTONEL [Concomitant]
  2. CELLCEPT [Concomitant]
  3. NEXIUM [Concomitant]
  4. UVEDOSE (CHOLECALCIFEROL) [Concomitant]
  5. VENOFER [Suspect]
     Indication: PRODUCT USED FOR UNKNOWN INDICATION
     Dosage: 100 MG ONCE WEEKLY;
  6. TENORMIN [Concomitant]
  7. ASPEGIC NOURISSONS (LYSINE ACETYLSALICYLATE) [Concomitant]
  8. FUROSEMIDE [Concomitant]
  9. PROGRAF [Concomitant]

REACTIONS (4)
  - MALAISE [None]
  - FATIGUE [None]
  - DIARRHOEA [None]
  - VOMITING [None]
